FAERS Safety Report 5771182-4 (Version None)
Quarter: 2008Q2

REPORT INFORMATION
  Report Type: 
  Country: None (occurrence: None)
  Receive Date: 20080613
  Receipt Date: 20080523
  Transmission Date: 20081010
  Serious: No
  Sender: FDA-Public Use
  Company Number: US-ABBOTT-08P-163-0454498-00

PATIENT
  Sex: Female
  Weight: 108.96 kg

DRUGS (10)
  1. HUMIRA [Suspect]
     Indication: CROHN'S DISEASE
     Route: 058
     Dates: start: 20080101, end: 20080501
  2. HUMIRA [Suspect]
     Dates: start: 20070801, end: 20080101
  3. DRONABINOL [Concomitant]
     Indication: NAUSEA
  4. LOMOTIL [Concomitant]
     Indication: DIARRHOEA
  5. IMODIUM [Concomitant]
     Indication: DIARRHOEA
  6. DTO (OPIUM DERIVITIVE) [Concomitant]
     Indication: GASTROINTESTINAL HYPOMOTILITY
  7. XOPENEX NEBULIZER [Concomitant]
     Indication: BRONCHITIS
     Route: 055
  8. LEVOSALBUTAMOL [Concomitant]
     Indication: DYSPNOEA
     Route: 055
  9. GABAPENTIN [Concomitant]
     Indication: CONVULSION
     Dosage: 100 MG Q AM. 200 MG Q MG
  10. GABAPENTIN [Concomitant]
     Indication: PAIN

REACTIONS (5)
  - FALL [None]
  - FREQUENT BOWEL MOVEMENTS [None]
  - GASTROINTESTINAL PAIN [None]
  - NUCLEAR MAGNETIC RESONANCE IMAGING ABNORMAL [None]
  - SECRETION DISCHARGE [None]
